FAERS Safety Report 19743733 (Version 3)
Quarter: 2022Q1

REPORT INFORMATION
  Report Type: Report from Study
  Country: PA (occurrence: PA)
  Receive Date: 20210825
  Receipt Date: 20220224
  Transmission Date: 20220423
  Serious: Yes (Other)
  Sender: FDA-Public Use
  Company Number: PA-NOVARTISPH-NVSC2020PA244629

PATIENT
  Age: 32 Year
  Sex: Female
  Weight: 55 kg

DRUGS (10)
  1. COSENTYX [Suspect]
     Active Substance: SECUKINUMAB
     Indication: Ankylosing spondylitis
     Dosage: 150 MG, QMO (BENEATH THE SKIN, USUALLY VIA INJECTION)
     Route: 058
     Dates: start: 20200812
  2. COSENTYX [Suspect]
     Active Substance: SECUKINUMAB
     Dosage: 150 MG, QMO
     Route: 058
     Dates: start: 20200819
  3. COSENTYX [Suspect]
     Active Substance: SECUKINUMAB
     Dosage: 150 MG, QMO
     Route: 058
  4. METHOTREXATE [Concomitant]
     Active Substance: METHOTREXATE
     Indication: Product used for unknown indication
     Dosage: 2.5 MG (EVERY WEEK 6 TABLETS)
     Route: 048
  5. METHOTREXATE [Concomitant]
     Active Substance: METHOTREXATE
     Dosage: 4 DF, QD
     Route: 065
  6. METHOTREXATE [Concomitant]
     Active Substance: METHOTREXATE
     Dosage: 2 DF, QD
     Route: 065
  7. GLUCOSAMINE SULFATE [Concomitant]
     Active Substance: GLUCOSAMINE SULFATE
     Indication: Product used for unknown indication
     Dosage: UNK
     Route: 065
  8. OMEGA 3 [Concomitant]
     Active Substance: CAPSAICIN
     Indication: Product used for unknown indication
     Dosage: UNK
     Route: 065
  9. ASCORBIC ACID;CHONDROITIN;COLLAGEN; [Concomitant]
     Indication: Product used for unknown indication
     Dosage: UNK
     Route: 065
  10. UNSPECIFIED INGREDIENT [Concomitant]
     Active Substance: UNSPECIFIED INGREDIENT
     Indication: Product used for unknown indication
     Dosage: UNK
     Route: 065

REACTIONS (31)
  - Hordeolum [Unknown]
  - Visual impairment [Unknown]
  - Dry skin [Recovered/Resolved]
  - Fungal skin infection [Recovered/Resolved]
  - Skin exfoliation [Recovered/Resolved]
  - Oedema peripheral [Recovering/Resolving]
  - Pain [Recovering/Resolving]
  - Alopecia [Recovering/Resolving]
  - Food allergy [Unknown]
  - Pain in extremity [Recovering/Resolving]
  - Skin discolouration [Recovering/Resolving]
  - Gait disturbance [Unknown]
  - Localised infection [Recovering/Resolving]
  - Face oedema [Not Recovered/Not Resolved]
  - Sneezing [Unknown]
  - Erythema [Unknown]
  - Skin exfoliation [Unknown]
  - Hypersensitivity [Recovering/Resolving]
  - Full blood count [Unknown]
  - Polymerase chain reaction [Unknown]
  - Depressed mood [Not Recovered/Not Resolved]
  - Emotional disorder [Unknown]
  - Malaise [Unknown]
  - Feeling abnormal [Unknown]
  - Somatic symptom disorder [Unknown]
  - Urticaria [Recovered/Resolved]
  - Arthritis [Recovered/Resolved]
  - Arthralgia [Unknown]
  - Anxiety [Not Recovered/Not Resolved]
  - Inappropriate schedule of product administration [Unknown]
  - Drug ineffective [Recovering/Resolving]

NARRATIVE: CASE EVENT DATE: 20200907
